FAERS Safety Report 17742294 (Version 1)
Quarter: 2020Q2

REPORT INFORMATION
  Report Type: Spontaneous
  Country: FR (occurrence: FR)
  Receive Date: 20200504
  Receipt Date: 20200504
  Transmission Date: 20200714
  Serious: Yes (Other)
  Sender: FDA-Public Use
  Company Number: FR-MYLANLABS-2020M1043031

PATIENT
  Age: 80 Year
  Sex: Male

DRUGS (3)
  1. ACICLOVIR [Suspect]
     Active Substance: ACYCLOVIR
     Indication: PRODUCT USED FOR UNKNOWN INDICATION
     Dosage: 10 MG/KG FOR 8 HOURS
     Route: 042
  2. VALACICLOVIR [Suspect]
     Active Substance: VALACYCLOVIR HYDROCHLORIDE
     Indication: PRODUCT USED FOR UNKNOWN INDICATION
     Dosage: UNK
     Route: 048
  3. GANCICLOVIR. [Suspect]
     Active Substance: GANCICLOVIR
     Indication: VARICELLA ZOSTER VIRUS INFECTION
     Dosage: 14 INJECTIONS, 2000 MICROG/0.05 ML
     Route: 031

REACTIONS (3)
  - Product use in unapproved indication [Recovered/Resolved]
  - Product use issue [Recovered/Resolved]
  - Glaucoma [Unknown]
